FAERS Safety Report 21232101 (Version 1)
Quarter: 2022Q3

REPORT INFORMATION
  Report Type: Spontaneous
  Country: CA (occurrence: CA)
  Receive Date: 20220819
  Receipt Date: 20220819
  Transmission Date: 20221026
  Serious: Yes (Other)
  Sender: FDA-Public Use
  Company Number: CA-TEVA-2022-CA-2065340

PATIENT

DRUGS (21)
  1. AMITRIPTYLINE [Suspect]
     Active Substance: AMITRIPTYLINE
     Indication: Product used for unknown indication
     Route: 064
  2. AMITRIPTYLINE [Suspect]
     Active Substance: AMITRIPTYLINE
     Dosage: 25 MILLIGRAM DAILY;
     Route: 064
  3. HYDROMORPHONE HYDROCHLORIDE [Suspect]
     Active Substance: HYDROMORPHONE HYDROCHLORIDE
     Indication: Post-traumatic pain
     Dosage: 24 MILLIGRAM DAILY;
     Route: 064
  4. LORAZEPAM [Suspect]
     Active Substance: LORAZEPAM
     Indication: Product used for unknown indication
     Dosage: .5 MILLIGRAM DAILY;
     Route: 064
  5. LORAZEPAM [Suspect]
     Active Substance: LORAZEPAM
     Dosage: .5 MILLIGRAM DAILY;
     Route: 064
  6. ONDANSETRON [Suspect]
     Active Substance: ONDANSETRON
     Indication: Product used for unknown indication
     Route: 064
  7. ONDANSETRON [Suspect]
     Active Substance: ONDANSETRON
     Route: 064
  8. ONDANSETRON [Suspect]
     Active Substance: ONDANSETRON
     Route: 064
  9. PANTOPRAZOLE [Suspect]
     Active Substance: PANTOPRAZOLE
     Indication: Product used for unknown indication
     Route: 064
  10. PANTOPRAZOLE [Suspect]
     Active Substance: PANTOPRAZOLE
     Route: 064
  11. ENOXAPARIN [Suspect]
     Active Substance: ENOXAPARIN
     Indication: Product used for unknown indication
     Route: 064
  12. ENOXAPARIN [Suspect]
     Active Substance: ENOXAPARIN
     Route: 064
  13. FENTANYL [Suspect]
     Active Substance: FENTANYL
     Indication: Post-traumatic pain
     Route: 064
  14. GRAVOL [Suspect]
     Active Substance: DIMENHYDRINATE
     Indication: Product used for unknown indication
     Route: 064
  15. GRAVOL [Suspect]
     Active Substance: DIMENHYDRINATE
     Route: 064
  16. GRAVOL [Suspect]
     Active Substance: DIMENHYDRINATE
     Route: 064
  17. HYDROMORPHONE [Suspect]
     Active Substance: HYDROMORPHONE
     Indication: Post-traumatic pain
     Dosage: 72 MILLIGRAM DAILY;
     Route: 064
  18. PROCHLORPERAZINE MALEATE [Suspect]
     Active Substance: PROCHLORPERAZINE MALEATE
     Indication: Product used for unknown indication
     Route: 064
  19. PROCHLORPERAZINE MALEATE [Suspect]
     Active Substance: PROCHLORPERAZINE MALEATE
     Route: 064
  20. PROCHLORPERAZINE MALEATE [Suspect]
     Active Substance: PROCHLORPERAZINE MALEATE
     Route: 064
  21. PROCHLORPERAZINE MALEATE [Suspect]
     Active Substance: PROCHLORPERAZINE MALEATE
     Route: 064

REACTIONS (2)
  - Maternal exposure during pregnancy [Recovered/Resolved]
  - Premature baby [Recovered/Resolved]
